FAERS Safety Report 11348322 (Version 1)
Quarter: 2015Q3

REPORT INFORMATION
  Report Type: Spontaneous
  Country: US (occurrence: US)
  Receive Date: 20150806
  Receipt Date: 20150806
  Transmission Date: 20151125
  Serious: No
  Sender: FDA-Public Use
  Company Number: GXBR2015US001246

PATIENT
  Sex: Female
  Weight: 48.53 kg

DRUGS (2)
  1. FIBER [Concomitant]
     Active Substance: PSYLLIUM HUSK
     Dosage: UNK DF, PRN
  2. CHOLESTYRAMINE FOR ORAL SUSPENSION USP [Suspect]
     Active Substance: CHOLESTYRAMINE
     Indication: DIARRHOEA
     Dosage: 1 SCOOP IN THE AM, REPEAT AT NIGHT TIME BEFORE BED ON A BAD DAY
     Route: 048

REACTIONS (2)
  - Drug ineffective [Not Recovered/Not Resolved]
  - Diarrhoea [Not Recovered/Not Resolved]
